FAERS Safety Report 6911440-0 (Version None)
Quarter: 2010Q3

REPORT INFORMATION
  Report Type: 
  Country: None (occurrence: None)
  Receive Date: 20100806
  Receipt Date: 20100728
  Transmission Date: 20110219
  Serious: Yes (Disabling)
  Sender: FDA-Public Use
  Company Number: GXKR2010GB08503

PATIENT
  Age: 75 Year
  Sex: Female
  Weight: 62 kg

DRUGS (10)
  1. TAMSULOSIN (NGX) [Suspect]
     Indication: URINE FLOW DECREASED
     Dosage: 400 UG, QD
     Route: 048
  2. DUTASTERIDE [Suspect]
     Indication: BENIGN PROSTATIC HYPERPLASIA
     Dosage: 500 UG, QD
     Route: 048
     Dates: start: 20091101
  3. ACETYLSALICYLIC ACID SRT [Concomitant]
  4. ATORVASTATIN [Concomitant]
     Indication: HYPERLIPIDAEMIA
     Dosage: 80 MG, QD
     Route: 048
     Dates: start: 20080301
  5. BISOPROLOL [Concomitant]
  6. CLOPIDOGREL [Concomitant]
  7. MIRTAZAPINE [Concomitant]
     Indication: MAJOR DEPRESSION
     Dosage: 45 MG, UNK
     Route: 048
     Dates: start: 20100201, end: 20100501
  8. PERINDOPRIL [Concomitant]
  9. ZOPICLONE [Concomitant]
     Indication: DEPRESSION
     Dosage: 3.75 MG, UNK
     Route: 048
     Dates: start: 20100601
  10. ZOPICLONE [Concomitant]
     Indication: INSOMNIA

REACTIONS (1)
  - MAJOR DEPRESSION [None]
